FAERS Safety Report 8283628-0 (Version None)
Quarter: 2012Q2

REPORT INFORMATION
  Report Type: 
  Country: None (occurrence: None)
  Receive Date: 20120413
  Receipt Date: 20120404
  Transmission Date: 20120825
  Serious: No
  Sender: FDA-Public Use
  Company Number: CA-ELI_LILLY_AND_COMPANY-CA201204001181

PATIENT
  Sex: Male

DRUGS (1)
  1. CIALIS [Suspect]
     Dosage: 20 MG, UNK
     Dates: start: 20120401

REACTIONS (4)
  - VISION BLURRED [None]
  - HEADACHE [None]
  - MYALGIA [None]
  - BACK PAIN [None]
